FAERS Safety Report 15969733 (Version 1)
Quarter: 2019Q1

REPORT INFORMATION
  Report Type: Report from Study
  Country: CA (occurrence: CA)
  Receive Date: 20190215
  Receipt Date: 20190215
  Transmission Date: 20190418
  Serious: Yes (Hospitalization)
  Sender: FDA-Public Use
  Company Number: CA-PFIZER INC-2019065324

PATIENT
  Age: 48 Year
  Sex: Female

DRUGS (41)
  1. TRASTUZUMAB. [Suspect]
     Active Substance: TRASTUZUMAB
     Dosage: UNK, EVERY 3 WEEKS
     Route: 042
  2. CITALOPRAM [Concomitant]
     Active Substance: CITALOPRAM HYDROBROMIDE
     Dosage: UNK
  3. METOCLOPRAMIDE. [Concomitant]
     Active Substance: METOCLOPRAMIDE
     Dosage: UNK
     Route: 065
  4. CARBOPLATIN. [Suspect]
     Active Substance: CARBOPLATIN
     Dosage: 684 MG, EVERY 3 WEEKS
     Route: 042
  5. PERTUZUMAB. [Suspect]
     Active Substance: PERTUZUMAB
     Indication: HER-2 POSITIVE BREAST CANCER
     Dosage: 840 MG, UNK
     Route: 042
  6. TRASTUZUMAB. [Suspect]
     Active Substance: TRASTUZUMAB
     Dosage: UNK, EVERY 3 WEEKS
     Route: 042
  7. CALCIUM [Concomitant]
     Active Substance: CALCIUM
     Dosage: UNK
  8. DEXAMETHASONE. [Concomitant]
     Active Substance: DEXAMETHASONE
     Indication: PROPHYLAXIS
     Dosage: UNK
  9. EMEND [Concomitant]
     Active Substance: APREPITANT
     Dosage: UNK
     Route: 065
  10. HYDROCORTISONE. [Concomitant]
     Active Substance: HYDROCORTISONE
     Dosage: UNK
     Route: 065
  11. NEULASTA [Concomitant]
     Active Substance: PEGFILGRASTIM
     Indication: PROPHYLAXIS
     Dosage: UNK
     Route: 058
  12. TYLENOL [Concomitant]
     Active Substance: ACETAMINOPHEN
     Dosage: UNK
     Route: 065
  13. DOCETAXEL. [Suspect]
     Active Substance: DOCETAXEL
     Indication: HER-2 POSITIVE BREAST CANCER
     Dosage: 84 MG, EVERY 3 WEEKS
     Route: 042
  14. PERJETA [Suspect]
     Active Substance: PERTUZUMAB
     Dosage: UNK, EVERY 3 WEEKS
     Route: 042
  15. PIPERACILLIN SODIUM/TAZOBACTAM SODIUM [Concomitant]
     Dosage: 4 G, UNK
  16. PERTUZUMAB. [Suspect]
     Active Substance: PERTUZUMAB
     Dosage: UNK, EVERY 3 WEEKS
     Route: 042
  17. PERTUZUMAB. [Suspect]
     Active Substance: PERTUZUMAB
     Dosage: 420 MG, EVERY 3 WEEKS
     Route: 042
  18. PEGFILGRASTIM [Concomitant]
     Active Substance: PEGFILGRASTIM
     Indication: PROPHYLAXIS
     Dosage: UNK
  19. LOPERAMIDE [Concomitant]
     Active Substance: LOPERAMIDE
     Dosage: UNK
     Route: 065
  20. CARBOPLATIN. [Suspect]
     Active Substance: CARBOPLATIN
     Indication: HER-2 POSITIVE BREAST CANCER
     Dosage: 684 MG, EVERY 3 WEEKS
     Route: 042
  21. CARBOPLATIN. [Suspect]
     Active Substance: CARBOPLATIN
     Dosage: 677 MG, EVERY 3 WEEKS
     Route: 042
  22. ERGOCALCIFEROL. [Concomitant]
     Active Substance: ERGOCALCIFEROL
     Dosage: UNK
  23. OMEPRAZOLE. [Concomitant]
     Active Substance: OMEPRAZOLE
     Indication: PROPHYLAXIS
     Dosage: UNK
  24. SILVER SULFADIAZINE. [Concomitant]
     Active Substance: SILVER SULFADIAZINE
     Dosage: UNK
     Route: 065
  25. MORPHINE [Concomitant]
     Active Substance: MORPHINE
     Dosage: UNK
     Route: 065
  26. DOCETAXEL. [Suspect]
     Active Substance: DOCETAXEL
     Dosage: 126 MG, EVERY 3 WEEKS
     Route: 042
  27. TRASTUZUMAB. [Suspect]
     Active Substance: TRASTUZUMAB
     Dosage: 414 MG, EVERY 3 WEEKS
     Route: 042
  28. TRASTUZUMAB. [Suspect]
     Active Substance: TRASTUZUMAB
     Dosage: 552 MG, EVERY 3 WEEKS
     Route: 042
  29. PIPERACILLIN SODIUM/TAZOBACTAM SODIUM [Concomitant]
     Dosage: UNK
     Route: 042
  30. ONDANSETRON [Concomitant]
     Active Substance: ONDANSETRON
     Dosage: UNK
     Route: 065
  31. DOCETAXEL. [Suspect]
     Active Substance: DOCETAXEL
     Dosage: 84 MG, EVERY 3 WEEKS
     Route: 042
  32. TRASTUZUMAB. [Suspect]
     Active Substance: TRASTUZUMAB
     Indication: HER-2 POSITIVE BREAST CANCER
     Dosage: 552 MG, EVERY 3 WEEKS
     Route: 042
  33. PIPERACILLIN SODIUM/TAZOBACTAM SODIUM [Concomitant]
     Dosage: 4.5 G, UNK
  34. PIPERACILLIN SODIUM/TAZOBACTAM SODIUM [Concomitant]
     Dosage: 4.5 G, UNK
     Route: 065
  35. ZANTAC [Concomitant]
     Active Substance: RANITIDINE HYDROCHLORIDE
     Dosage: UNK
  36. CARBOPLATIN. [Suspect]
     Active Substance: CARBOPLATIN
     Dosage: 677 MG, EVERY 3 WEEKS
     Route: 042
  37. DOCETAXEL. [Suspect]
     Active Substance: DOCETAXEL
     Dosage: 126 MG, EVERY 3 WEEKS
     Route: 042
  38. PERJETA [Suspect]
     Active Substance: PERTUZUMAB
     Indication: HER-2 POSITIVE BREAST CANCER
     Dosage: 840 MG, EVERY 3 WEEKS
     Route: 042
  39. PERJETA [Suspect]
     Active Substance: PERTUZUMAB
     Dosage: 420 MG, EVERY 3 WEEKS
     Route: 042
  40. PIPERACILLIN SODIUM/TAZOBACTAM SODIUM [Concomitant]
     Dosage: 4 G, UNK
     Route: 065
  41. RANITIDINE. [Concomitant]
     Active Substance: RANITIDINE
     Dosage: UNK
     Route: 065

REACTIONS (2)
  - Pneumonia [Recovered/Resolved]
  - Pulmonary embolism [Recovered/Resolved]
